FAERS Safety Report 9751229 (Version 1)
Quarter: 2013Q4

REPORT INFORMATION
  Report Type: Spontaneous
  Country: US (occurrence: US)
  Receive Date: 20131212
  Receipt Date: 20131212
  Transmission Date: 20140711
  Serious: No
  Sender: FDA-Public Use
  Company Number: US-BIOGENIDEC-2013BI100688

PATIENT
  Age: 40 Year
  Sex: Female

DRUGS (9)
  1. TECFIDERA [Suspect]
     Indication: MULTIPLE SCLEROSIS
     Route: 048
     Dates: start: 20131009
  2. KLONOPIN [Concomitant]
  3. CARBAMAZEPINE [Concomitant]
  4. GABAPENTIN [Concomitant]
  5. VITAMIN D [Concomitant]
  6. TIZANIDINE [Concomitant]
  7. OXYCODONE [Concomitant]
  8. OXYBUTYNIN [Concomitant]
  9. FISH OIL [Concomitant]

REACTIONS (2)
  - Nausea [Unknown]
  - Abdominal pain [Unknown]
